FAERS Safety Report 14163532 (Version 3)
Quarter: 2018Q2

REPORT INFORMATION
  Report Type: Report from Study
  Country: US (occurrence: US)
  Receive Date: 20171106
  Receipt Date: 20180621
  Transmission Date: 20180711
  Serious: Yes (Death, Hospitalization)
  Sender: FDA-Public Use
  Company Number: US-ACTELION-A-US2017-161917

PATIENT
  Age: 67 Year
  Sex: Female

DRUGS (3)
  1. UPTRAVI [Suspect]
     Active Substance: SELEXIPAG
     Indication: PULMONARY ARTERIAL HYPERTENSION
     Dosage: 1000 MCG, BID
     Route: 048
  2. UPTRAVI [Suspect]
     Active Substance: SELEXIPAG
     Dosage: UNK
     Route: 048
     Dates: start: 20170719
  3. UPTRAVI [Suspect]
     Active Substance: SELEXIPAG
     Dosage: 800 MCG, BID
     Route: 048
     Dates: start: 20170722

REACTIONS (9)
  - Dyspnoea [Recovering/Resolving]
  - Oedema [Not Recovered/Not Resolved]
  - Cough [Recovering/Resolving]
  - Arthralgia [Not Recovered/Not Resolved]
  - Cardiac failure congestive [Fatal]
  - Fluid overload [Recovering/Resolving]
  - Arthritis [Unknown]
  - Influenza [Recovering/Resolving]
  - Bronchitis viral [Recovered/Resolved]

NARRATIVE: CASE EVENT DATE: 20171019
